FAERS Safety Report 14125740 (Version 2)
Quarter: 2017Q4

REPORT INFORMATION
  Report Type: Spontaneous
  Country: US (occurrence: US)
  Receive Date: 20171025
  Receipt Date: 20171204
  Transmission Date: 20180321
  Serious: No
  Sender: FDA-Public Use
  Company Number: US-GLAXOSMITHKLINE-US2017162904

PATIENT
  Age: 56 Year
  Sex: Female

DRUGS (27)
  1. METHOTREXATE. [Concomitant]
     Active Substance: METHOTREXATE
  2. COMBIPATCH [Concomitant]
     Active Substance: ESTRADIOL\NORETHINDRONE ACETATE
  3. CARAFATE [Concomitant]
     Active Substance: SUCRALFATE
  4. TYLENOL WITH CODEINE [Concomitant]
     Active Substance: ACETAMINOPHEN\CODEINE PHOSPHATE
  5. MICROBID [Concomitant]
     Active Substance: SULFAMETHOXAZOLE\TRIMETHOPRIM
  6. FLEXERIL [Concomitant]
     Active Substance: CYCLOBENZAPRINE HYDROCHLORIDE
  7. TYLENOL [Concomitant]
     Active Substance: ACETAMINOPHEN
  8. SYNTHROID [Concomitant]
     Active Substance: LEVOTHYROXINE SODIUM
  9. PLAQUENIL [Concomitant]
     Active Substance: HYDROXYCHLOROQUINE SULFATE
  10. WELLBUTRIN [Concomitant]
     Active Substance: BUPROPION HYDROCHLORIDE
  11. COLACE [Concomitant]
     Active Substance: DOCUSATE SODIUM
  12. MAGNESIUM [Concomitant]
     Active Substance: MAGNESIUM
  13. AMITIZA [Concomitant]
     Active Substance: LUBIPROSTONE
  14. BENLYSTA [Suspect]
     Active Substance: BELIMUMAB
     Indication: SYSTEMIC LUPUS ERYTHEMATOSUS
     Dosage: 450 MG, CYC
     Route: 042
     Dates: start: 2011
  15. CARVEDILOL. [Concomitant]
     Active Substance: CARVEDILOL
  16. ZANTAC [Concomitant]
     Active Substance: RANITIDINE HYDROCHLORIDE
  17. VOLTAREN CREAM [Concomitant]
  18. CYTOMEL [Concomitant]
     Active Substance: LIOTHYRONINE SODIUM
  19. TRAMADOL. [Concomitant]
     Active Substance: TRAMADOL
  20. MEDROL [Concomitant]
     Active Substance: METHYLPREDNISOLONE
  21. CHLORAZEPAM [Concomitant]
     Active Substance: CHLORAZEPAM
  22. BUSPAR [Concomitant]
     Active Substance: BUSPIRONE HYDROCHLORIDE
  23. OMEGA COD LIVER OIL [Concomitant]
  24. COQ10 [Concomitant]
     Active Substance: UBIDECARENONE
  25. IMDUR [Concomitant]
     Active Substance: ISOSORBIDE MONONITRATE
  26. L-CARNITINE [Concomitant]
     Active Substance: LEVOCARNITINE
  27. FISH OIL [Concomitant]
     Active Substance: FISH OIL

REACTIONS (2)
  - Pyrexia [Not Recovered/Not Resolved]
  - Drug effect decreased [Unknown]

NARRATIVE: CASE EVENT DATE: 201703
